FAERS Safety Report 7803601-3 (Version None)
Quarter: 2011Q4

REPORT INFORMATION
  Report Type: 
  Country: None (occurrence: None)
  Receive Date: 20111009
  Receipt Date: 20111005
  Transmission Date: 20120403
  Serious: Yes (Other)
  Sender: FDA-Public Use
  Company Number: DE-BRISTOL-MYERS SQUIBB COMPANY-16054991

PATIENT
  Age: 58 Year
  Sex: Male

DRUGS (6)
  1. KALETRA [Suspect]
     Dosage: 1DF=200/50 MG.  2-0-2
  2. METOPROLOL SUCCINATE [Suspect]
     Dosage: 1-0-0
  3. INVIRASE [Suspect]
     Dosage: 2-0-2
  4. RAMIPRIL [Suspect]
     Dosage: 1-0-0
  5. PLAVIX [Suspect]
     Dosage: 1-0-0
  6. PRAVASTATIN SODIUM [Suspect]
     Indication: CORONARY ARTERY DISEASE

REACTIONS (1)
  - AIDS ENCEPHALOPATHY [None]
